FAERS Safety Report 13741535 (Version 1)
Quarter: 2017Q3

REPORT INFORMATION
  Report Type: Spontaneous
  Country: US (occurrence: US)
  Receive Date: 20170711
  Receipt Date: 20170711
  Transmission Date: 20171127
  Serious: No
  Sender: FDA-Public Use
  Company Number: US-PFIZER INC-2017294707

PATIENT
  Sex: Female

DRUGS (1)
  1. EMBEDA [Suspect]
     Active Substance: MORPHINE SULFATE\NALTREXONE HYDROCHLORIDE
     Dosage: 1 DF, 2X/DAY
     Dates: start: 20170203

REACTIONS (4)
  - Nausea [Unknown]
  - Drug withdrawal syndrome [Unknown]
  - Intentional product use issue [Unknown]
  - Cold sweat [Unknown]
